FAERS Safety Report 24540981 (Version 2)
Quarter: 2024Q4

REPORT INFORMATION
  Report Type: Spontaneous
  Country: JP (occurrence: JP)
  Receive Date: 20241023
  Receipt Date: 20241211
  Transmission Date: 20250115
  Serious: Yes (Hospitalization, Other)
  Sender: ELI LILLY AND COMPANY
  Company Number: JP-ELI_LILLY_AND_COMPANY-JP202410013475

PATIENT
  Age: 76 Year
  Sex: Female
  Weight: 47.3 kg

DRUGS (3)
  1. CYRAMZA [Suspect]
     Active Substance: RAMUCIRUMAB
     Indication: Lung neoplasm malignant
     Dosage: 10 MG/KG, CYCLICAL
     Route: 042
     Dates: start: 20230926, end: 20240919
  2. ERLOTINIB HYDROCHLORIDE [Suspect]
     Active Substance: ERLOTINIB HYDROCHLORIDE
     Indication: Lung neoplasm malignant
     Dosage: 150 MG, DAILY
     Route: 048
     Dates: start: 20230926, end: 20240922
  3. MINOCYCLINE HYDROCHLORIDE [Concomitant]
     Active Substance: MINOCYCLINE HYDROCHLORIDE
     Indication: Prophylaxis
     Dosage: 100 MG, BID
     Route: 048
     Dates: start: 20230926, end: 20231128

REACTIONS (9)
  - Drug eruption [Recovered/Resolved with Sequelae]
  - Skin infection [Recovered/Resolved with Sequelae]
  - Malignant neoplasm progression [Unknown]
  - Onychoclasis [Unknown]
  - Renal impairment [Unknown]
  - Hepatic function abnormal [Unknown]
  - Oropharyngeal pain [Unknown]
  - Constipation [Unknown]
  - Rectal ulcer [Unknown]

NARRATIVE: CASE EVENT DATE: 20240401
